FAERS Safety Report 11114265 (Version 1)
Quarter: 2015Q2

REPORT INFORMATION
  Report Type: Spontaneous
  Country: US (occurrence: US)
  Receive Date: 20150514
  Receipt Date: 20150514
  Transmission Date: 20150821
  Serious: No
  Sender: FDA-Public Use
  Company Number: US-GLAXOSMITHKLINE-US2015031718

PATIENT
  Age: 74 Year
  Sex: Female

DRUGS (1)
  1. FLONASE [Suspect]
     Active Substance: FLUTICASONE PROPIONATE
     Indication: HYPERSENSITIVITY
     Dosage: UNK
     Route: 045
     Dates: start: 201403, end: 201503

REACTIONS (4)
  - Hypersensitivity [Not Recovered/Not Resolved]
  - Swollen tongue [Recovered/Resolved]
  - Glossodynia [Not Recovered/Not Resolved]
  - Paraesthesia oral [Not Recovered/Not Resolved]
